FAERS Safety Report 4475347-3 (Version None)
Quarter: 2004Q4

REPORT INFORMATION
  Report Type: 
  Country: None (occurrence: None)
  Receive Date: 20041015
  Receipt Date: 20040915
  Transmission Date: 20050328
  Serious: Yes (Hospitalization, Other)
  Sender: FDA-Public Use
  Company Number: ES-BRISTOL-MYERS SQUIBB COMPANY-12702973

PATIENT
  Age: 36 Year
  Sex: Male
  Weight: 66 kg

DRUGS (12)
  1. ATAZANAVIR [Suspect]
     Indication: HIV INFECTION
     Route: 048
     Dates: start: 20040618
  2. ZERIT [Concomitant]
     Dates: start: 20031214
  3. LAMIVUDINE [Concomitant]
     Dates: start: 20031214
  4. RITONAVIR [Concomitant]
     Dates: start: 20031214
  5. METHADONE HCL [Concomitant]
     Dates: start: 19990119
  6. MILTEFOSINE [Concomitant]
     Dates: start: 20031102
  7. OLANZAPINE [Concomitant]
  8. MIRTAZAPINE [Concomitant]
     Dates: start: 20040915
  9. RANITIDINE [Concomitant]
     Dates: start: 20040915
  10. ALPRAZOLAM [Concomitant]
     Dates: start: 20040901
  11. LORAZEPAM [Concomitant]
     Dosage: 1 MG-0.5 MG
     Dates: start: 20040915
  12. GABAPENTIN [Concomitant]
     Dosage: 800-400-800 MG
     Dates: start: 20040915

REACTIONS (9)
  - BACTERIA SPUTUM IDENTIFIED [None]
  - CHEST X-RAY ABNORMAL [None]
  - HAEMOPHILUS INFECTION [None]
  - LIPODYSTROPHY ACQUIRED [None]
  - MYCOBACTERIAL INFECTION [None]
  - PULMONARY FIBROSIS [None]
  - RESPIRATORY TRACT INFECTION [None]
  - SCAR [None]
  - SUPERINFECTION [None]
